FAERS Safety Report 14962912 (Version 1)
Quarter: 2018Q2

REPORT INFORMATION
  Report Type: Spontaneous
  Country: US (occurrence: US)
  Receive Date: 20180601
  Receipt Date: 20180601
  Transmission Date: 20180711
  Serious: Yes (Death, Other)
  Sender: FDA-Public Use
  Company Number: US-TAKEDA-2018MPI006465

PATIENT

DRUGS (1)
  1. BORTEZOMIB [Suspect]
     Active Substance: BORTEZOMIB
     Indication: SQUAMOUS CELL CARCINOMA OF HEAD AND NECK
     Dosage: 0.6 MG/M2, 1/WEEK
     Route: 040

REACTIONS (4)
  - Hyponatraemia [Unknown]
  - Pyrexia [Unknown]
  - Obstructive airways disorder [Fatal]
  - Off label use [Unknown]
